FAERS Safety Report 6223410-9 (Version None)
Quarter: 2009Q2

REPORT INFORMATION
  Report Type: 
  Country: None (occurrence: None)
  Receive Date: 20090609
  Receipt Date: 20090526
  Transmission Date: 20091009
  Serious: Yes (Hospitalization)
  Sender: FDA-Public Use
  Company Number: 1000006612

PATIENT
  Age: 57 Year
  Sex: Female

DRUGS (12)
  1. ESCITALOPRAM [Suspect]
     Dosage: 40 MG (20 MG, 2 IN 1 D), ORAL
     Route: 048
  2. ZAMICTA [Suspect]
  3. LEVOTHYROX [Concomitant]
  4. EQUANIL [Concomitant]
  5. SERESTA [Concomitant]
  6. IRBESARTAN [Concomitant]
  7. ISOPTIN [Concomitant]
  8. SERETIDE [Concomitant]
  9. UN-ALFA [Concomitant]
  10. VENTOLIN [Concomitant]
  11. NEXIUM [Concomitant]
  12. LOPERAMIDE HYDROCHLORIDE [Concomitant]

REACTIONS (6)
  - COUGH [None]
  - HAEMOPTYSIS [None]
  - HAEMORRHAGE [None]
  - METASTASES TO LUNG [None]
  - OVERDOSE [None]
  - PROTHROMBIN LEVEL ABNORMAL [None]
